FAERS Safety Report 14958184 (Version 1)
Quarter: 2018Q2

REPORT INFORMATION
  Report Type: Report from Study
  Country: GB (occurrence: GB)
  Receive Date: 20180531
  Receipt Date: 20180531
  Transmission Date: 20180711
  Serious: Yes (Other)
  Sender: FDA-Public Use
  Company Number: GB-JNJFOC-20180515404

PATIENT
  Sex: Female

DRUGS (1)
  1. STELARA [Suspect]
     Active Substance: USTEKINUMAB
     Indication: PSORIASIS
     Route: 058
     Dates: start: 20160826

REACTIONS (3)
  - Psoriasis [Unknown]
  - Lower respiratory tract infection [Unknown]
  - Drug dose omission [Unknown]

NARRATIVE: CASE EVENT DATE: 2018
